FAERS Safety Report 4822466-5 (Version None)
Quarter: 2005Q4

REPORT INFORMATION
  Report Type: 
  Country: None (occurrence: None)
  Receive Date: 20051104
  Receipt Date: 20051021
  Transmission Date: 20060501
  Serious: Yes (Hospitalization, Disabling)
  Sender: FDA-Public Use
  Company Number: PHHO2004JP12158

PATIENT
  Age: 73 Year
  Sex: Male

DRUGS (7)
  1. VISUDYNE [Suspect]
     Indication: MACULAR DEGENERATION
     Dates: start: 20040614, end: 20040614
  2. TAKEPRON [Concomitant]
  3. BLOPRESS [Concomitant]
  4. AMARYL [Concomitant]
  5. ADALAT [Concomitant]
  6. BUFFERIN [Concomitant]
  7. FRANDOL [Concomitant]

REACTIONS (5)
  - GLAUCOMA [None]
  - RETINAL DETACHMENT [None]
  - RETINAL HAEMORRHAGE [None]
  - VISUAL ACUITY REDUCED [None]
  - VITREOUS HAEMORRHAGE [None]
